FAERS Safety Report 5004845-9 (Version None)
Quarter: 2006Q2

REPORT INFORMATION
  Report Type: 
  Country: None (occurrence: None)
  Receive Date: 20060517
  Receipt Date: 20050112
  Transmission Date: 20061013
  Serious: Yes (Death, Hospitalization)
  Sender: FDA-Public Use
  Company Number: US-MERCK-0501USA01842

PATIENT
  Age: 79 Year
  Sex: Female

DRUGS (2)
  1. VIOXX [Suspect]
     Indication: ARTHRITIS
     Route: 048
     Dates: start: 20000101, end: 20040131
  2. TYLENOL (CAPLET) [Concomitant]
     Route: 065

REACTIONS (4)
  - ADVERSE EVENT [None]
  - CARDIAC DISORDER [None]
  - CHEST PAIN [None]
  - DEATH [None]
